FAERS Safety Report 13042399 (Version 1)
Quarter: 2016Q4

REPORT INFORMATION
  Report Type: Spontaneous
  Country: US (occurrence: US)
  Receive Date: 20161219
  Receipt Date: 20161219
  Transmission Date: 20170207
  Serious: Yes (Hospitalization)
  Sender: FDA-Public Use
  Company Number: US-BEH-2016076048

PATIENT
  Age: 25 Year
  Sex: Female
  Weight: 83.9 kg

DRUGS (23)
  1. CALCIUM CITRATE [Concomitant]
     Active Substance: CALCIUM CITRATE
  2. KEFLEX [Concomitant]
     Active Substance: CEPHALEXIN
  3. HYDROCODONE W/APAP                 /00607101/ [Concomitant]
  4. TUMS                               /00193601/ [Concomitant]
     Active Substance: CALCIUM CARBONATE\MAGNESIUM CARBONATE\MAGNESIUM TRISILICATE
  5. LORAZEPAM. [Concomitant]
     Active Substance: LORAZEPAM
  6. SODIUM BICARBONATE. [Concomitant]
     Active Substance: SODIUM BICARBONATE
  7. EPIPEN [Concomitant]
     Active Substance: EPINEPHRINE
  8. AUGMENTIN [Concomitant]
     Active Substance: AMOXICILLIN\CLAVULANATE POTASSIUM
  9. METOPROLOL. [Concomitant]
     Active Substance: METOPROLOL
  10. ACETAMINOPHEN. [Concomitant]
     Active Substance: ACETAMINOPHEN
  11. GLYBURIDE. [Concomitant]
     Active Substance: GLYBURIDE
  12. FLUOXETINE [Concomitant]
     Active Substance: FLUOXETINE HYDROCHLORIDE
  13. VITAMIN D2 [Concomitant]
     Active Substance: ERGOCALCIFEROL
  14. DIPHENHYDRAMINE. [Concomitant]
     Active Substance: DIPHENHYDRAMINE
  15. ABILIFY [Concomitant]
     Active Substance: ARIPIPRAZOLE
  16. PREDNISONE. [Concomitant]
     Active Substance: PREDNISONE
  17. MULTIVITAMINS [Concomitant]
     Active Substance: VITAMINS
  18. LIDOCAINE. [Concomitant]
     Active Substance: LIDOCAINE
  19. CALCITRIOL. [Concomitant]
     Active Substance: CALCITRIOL
  20. IRON [Concomitant]
     Active Substance: IRON
  21. HIZENTRA [Suspect]
     Active Substance: HUMAN IMMUNOGLOBULIN G
     Indication: HYPOGAMMAGLOBULINAEMIA
     Dosage: 8 G, QW
     Route: 058
     Dates: start: 20140908
  22. LYRICA [Concomitant]
     Active Substance: PREGABALIN
  23. VITAMIN D3 [Concomitant]
     Active Substance: CHOLECALCIFEROL

REACTIONS (1)
  - Arteriovenous fistula site complication [Unknown]

NARRATIVE: CASE EVENT DATE: 20161202
